FAERS Safety Report 8966997 (Version 1)
Quarter: 2012Q4

REPORT INFORMATION
  Report Type: 
  Country: FR (occurrence: FR)
  Receive Date: 20121217
  Receipt Date: 20121217
  Transmission Date: 20130627
  Serious: Yes (Life-Threatening)
  Sender: FDA-Public Use
  Company Number: FR-ELI_LILLY_AND_COMPANY-FR201212001756

PATIENT
  Age: 84 Year
  Sex: Female

DRUGS (9)
  1. CYMBALTA [Suspect]
     Dosage: 30 mg, qd
     Route: 048
  2. SINTROM [Concomitant]
     Dosage: 0.25 mg, UNK
  3. SINTROM [Concomitant]
     Dosage: 1 mg, UNK
  4. ISOPTINE [Concomitant]
     Dosage: 40 mg, bid
  5. DUROGESIC [Concomitant]
     Dosage: 12 ug, other
  6. STILNOX [Concomitant]
     Dosage: 10 mg, qd
  7. SERETIDE [Concomitant]
  8. KESTIN [Concomitant]
     Dosage: 10 mg, qd
  9. MOTILIUM [Concomitant]

REACTIONS (3)
  - Haemorrhagic stroke [Not Recovered/Not Resolved]
  - Haematoma [Unknown]
  - Pain [Unknown]
